FAERS Safety Report 4910284-9 (Version None)
Quarter: 2006Q1

REPORT INFORMATION
  Report Type: 
  Country: None (occurrence: None)
  Receive Date: 20060213
  Receipt Date: 20050930
  Transmission Date: 20060701
  Serious: Yes (Hospitalization, Other)
  Sender: FDA-Public Use
  Company Number: US-MERCK-0510USA02054

PATIENT
  Age: 57 Year
  Sex: Male

DRUGS (5)
  1. VIOXX [Suspect]
     Route: 048
     Dates: start: 20010401, end: 20041001
  2. AVALIDE [Concomitant]
     Route: 065
  3. ALLOPURINOL [Concomitant]
     Route: 065
  4. MECLIZINE [Concomitant]
     Route: 065
  5. PROMETHAZINE [Concomitant]
     Route: 065

REACTIONS (9)
  - ACUTE MYOCARDIAL INFARCTION [None]
  - AGEUSIA [None]
  - ANOSMIA [None]
  - CEREBROVASCULAR ACCIDENT [None]
  - COUGH [None]
  - HYPERTENSION [None]
  - LACUNAR INFARCTION [None]
  - MULTIPLE SCLEROSIS [None]
  - POLLAKIURIA [None]
